FAERS Safety Report 5009666-9 (Version None)
Quarter: 2006Q2

REPORT INFORMATION
  Report Type: 
  Country: None (occurrence: None)
  Receive Date: 20060524
  Receipt Date: 20060517
  Transmission Date: 20061013
  Serious: Yes (Hospitalization)
  Sender: FDA-Public Use
  Company Number: FR-GLAXOSMITHKLINE-B0424753A

PATIENT
  Age: 26 Year
  Sex: Female

DRUGS (2)
  1. AUGMENTIN '125' [Suspect]
     Indication: TOOTH DISORDER
     Route: 048
     Dates: start: 20060309, end: 20060313
  2. FLAGYL [Concomitant]
     Indication: TOOTH DISORDER
     Route: 048
     Dates: start: 20060309, end: 20060313

REACTIONS (6)
  - ABDOMINAL PAIN [None]
  - COLITIS PSEUDOMEMBRANOUS [None]
  - DIARRHOEA [None]
  - PROCTOCOLITIS [None]
  - RECTAL ULCER [None]
  - WEIGHT DECREASED [None]
